FAERS Safety Report 5356698-7 (Version None)
Quarter: 2007Q2

REPORT INFORMATION
  Report Type: 
  Country: None (occurrence: None)
  Receive Date: 20070614
  Receipt Date: 20070606
  Transmission Date: 20071010
  Serious: Yes (Hospitalization)
  Sender: FDA-Public Use
  Company Number: NL-ABBOTT-07P-114-0370737-00

PATIENT
  Age: 55 Year
  Sex: Male
  Weight: 90 kg

DRUGS (2)
  1. HUMIRA [Suspect]
     Indication: PSORIATIC ARTHROPATHY
     Route: 058
     Dates: start: 20050701, end: 20070301
  2. 'NEW' ACE INHIBITOR [Concomitant]
     Indication: HYPERTENSION
     Route: 048
     Dates: start: 20010101

REACTIONS (2)
  - HAEMOTHORAX [None]
  - RIB FRACTURE [None]
